FAERS Safety Report 7762416-5 (Version None)
Quarter: 2011Q3

REPORT INFORMATION
  Report Type: 
  Country: None (occurrence: None)
  Receive Date: 20110920
  Receipt Date: 20110914
  Transmission Date: 20111222
  Serious: Yes (Other)
  Sender: FDA-Public Use
  Company Number: US-ROCHE-803106

PATIENT
  Sex: Female

DRUGS (2)
  1. ACCUTANE [Suspect]
     Route: 065
     Dates: start: 20020301, end: 20021001
  2. ACCUTANE [Suspect]
     Route: 065
     Dates: start: 20031201, end: 20040601

REACTIONS (1)
  - GASTROINTESTINAL MOTILITY DISORDER [None]
